FAERS Safety Report 11418572 (Version 1)
Quarter: 2015Q3

REPORT INFORMATION
  Report Type: Spontaneous
  Country: AU (occurrence: AU)
  Receive Date: 20150826
  Receipt Date: 20150826
  Transmission Date: 20151125
  Serious: Yes (Other)
  Sender: FDA-Public Use
  Company Number: AU-TAKEDA-2015TJP015804

PATIENT
  Sex: Female

DRUGS (1)
  1. BRINTELLIX [Suspect]
     Active Substance: VORTIOXETINE HYDROBROMIDE
     Indication: PRODUCT USED FOR UNKNOWN INDICATION
     Dosage: 10 MG, UNK
     Route: 048

REACTIONS (6)
  - Dyspnoea [Unknown]
  - Agitation [Unknown]
  - Hypersensitivity [Unknown]
  - Angioedema [Recovering/Resolving]
  - Epistaxis [Unknown]
  - Emotional distress [Unknown]
